FAERS Safety Report 19672777 (Version 1)
Quarter: 2021Q3

REPORT INFORMATION
  Report Type: Report from Study
  Country: US (occurrence: US)
  Receive Date: 20210809
  Receipt Date: 20210809
  Transmission Date: 20211014
  Serious: No
  Sender: FDA-Public Use
  Company Number: NVSC2021US175571

PATIENT
  Sex: Female

DRUGS (2)
  1. COSENTYX [Suspect]
     Active Substance: SECUKINUMAB
     Indication: PSORIATIC ARTHROPATHY
     Dosage: 150 MG, QW  (ONCE WEEKLY FOR WEEKS AND THEN ONCE EVERY 4 WEEKS) (BENEATH THE SKIN, USUALLY VIA INJEC
     Route: 058
     Dates: start: 20201218
  2. COSENTYX [Suspect]
     Active Substance: SECUKINUMAB
     Dosage: UNK
     Route: 065
     Dates: start: 20210212

REACTIONS (3)
  - Condition aggravated [Unknown]
  - Psoriasis [Unknown]
  - Intentional dose omission [Unknown]
